FAERS Safety Report 8962243 (Version 2)
Quarter: 2012Q4

REPORT INFORMATION
  Report Type: 
  Country: US (occurrence: US)
  Receive Date: 20121212
  Receipt Date: 20121217
  Transmission Date: 20130627
  Serious: Yes (Other)
  Sender: FDA-Public Use
  Company Number: US-SANTEN INC.-INC-12-000383

PATIENT
  Sex: Male
  Weight: 68.1 kg

DRUGS (3)
  1. BETIMOL [Suspect]
     Indication: OCULAR HYPERTENSION
     Route: 061
     Dates: start: 2009
  2. QUINOPRIL [Concomitant]
  3. HYDROCHLOROTHIAZIDE [Concomitant]

REACTIONS (2)
  - Cataract operation [Recovered/Resolved]
  - Cataract operation [Recovered/Resolved]
